FAERS Safety Report 12900878 (Version 2)
Quarter: 2016Q4

REPORT INFORMATION
  Report Type: Spontaneous
  Country: JP (occurrence: JP)
  Receive Date: 20161101
  Receipt Date: 20161129
  Transmission Date: 20170207
  Serious: Yes (Hospitalization, Other)
  Sender: FDA-Public Use
  Company Number: JP-ALLERGAN-1000086346

PATIENT
  Age: 72 Year
  Sex: Female
  Weight: 47 kg

DRUGS (12)
  1. LENDORMIN [Suspect]
     Active Substance: BROTIZOLAM
     Indication: INSOMNIA
     Dosage: .25 MG, QD
     Route: 048
     Dates: start: 20151126
  2. MILMAG [Concomitant]
     Active Substance: MAGNESIUM HYDROXIDE
     Indication: CONSTIPATION
     Dosage: 300 MG, UNK
     Route: 048
     Dates: start: 20151126
  3. PARIET [Concomitant]
     Active Substance: RABEPRAZOLE SODIUM
     Indication: PRODUCT USED FOR UNKNOWN INDICATION
  4. ESCITALOPRAM OXALATE - BP [Suspect]
     Active Substance: ESCITALOPRAM OXALATE
     Indication: PANIC DISORDER
     Dosage: 10 MG, QD
     Route: 048
     Dates: start: 20160107, end: 20160307
  5. MICARDIS [Concomitant]
     Active Substance: TELMISARTAN
     Indication: HYPERTENSION
     Dosage: 1 DF, UNK
     Route: 048
     Dates: start: 20151126
  6. HANGEKOBOKUTO [Concomitant]
     Indication: PRODUCT USED FOR UNKNOWN INDICATION
  7. MICAMLO [Concomitant]
     Active Substance: AMLODIPINE BESYLATE\TELMISARTAN
     Indication: HYPERTENSION
     Dosage: UNK
  8. MALFA [Concomitant]
     Active Substance: ALUMINUM HYDROXIDE\MAGNESIUM HYDROXIDE
     Indication: DYSPEPSIA
     Dosage: UNK
     Route: 048
     Dates: start: 20151126
  9. GASMOTIN [Concomitant]
     Active Substance: MOSAPRIDE CITRATE
     Indication: PRODUCT USED FOR UNKNOWN INDICATION
  10. MYSTAN [Suspect]
     Active Substance: CLOBAZAM
     Indication: ANXIETY DISORDER
     Dosage: 5 MG, BID
     Route: 048
     Dates: start: 20151126
  11. BELSOMRA [Suspect]
     Active Substance: SUVOREXANT
     Indication: INSOMNIA
     Dosage: 20 MG, QD
     Route: 048
     Dates: start: 20160125
  12. MADOPAR [Concomitant]
     Active Substance: BENSERAZIDE HYDROCHLORIDE\LEVODOPA
     Indication: PRODUCT USED FOR UNKNOWN INDICATION

REACTIONS (5)
  - Serotonin syndrome [Recovered/Resolved]
  - Off label use [Unknown]
  - Gastrooesophageal reflux disease [Unknown]
  - Long QT syndrome [Recovered/Resolved]
  - Transient ischaemic attack [Unknown]
